FAERS Safety Report 5646791-3 (Version None)
Quarter: 2008Q1

REPORT INFORMATION
  Report Type: 
  Country: None (occurrence: None)
  Receive Date: 20080303
  Receipt Date: 20080226
  Transmission Date: 20080703
  Serious: Yes (Death)
  Sender: FDA-Public Use
  Company Number: US-BAYER-200813951GPV

PATIENT

DRUGS (2)
  1. ASPIRIN [Suspect]
     Indication: ISCHAEMIC STROKE
     Route: 048
  2. ASPIRIN [Suspect]
     Route: 048

REACTIONS (1)
  - CEREBRAL HAEMORRHAGE [None]
